FAERS Safety Report 6068591-5 (Version None)
Quarter: 2009Q1

REPORT INFORMATION
  Report Type: 
  Country: None (occurrence: None)
  Receive Date: 20090206
  Receipt Date: 20081125
  Transmission Date: 20090719
  Serious: Yes (Hospitalization)
  Sender: FDA-Public Use
  Company Number: CH-PFIZER INC-2008099903

PATIENT

DRUGS (6)
  1. LYRICA [Suspect]
     Indication: NEURALGIA
     Dosage: 300 MG, 2X/DAY
     Route: 048
     Dates: start: 20080722, end: 20080919
  2. PALLADONE [Concomitant]
     Dosage: UNK
     Route: 048
     Dates: start: 20030624
  3. PANTOZOL [Concomitant]
     Dosage: UNK
  4. ZURCAL [Concomitant]
     Dosage: UNK
     Route: 048
     Dates: start: 20040315
  5. ZOMIG [Concomitant]
     Dosage: UNK
     Route: 048
     Dates: start: 20041108
  6. CO-DAFALGAN [Concomitant]
     Dosage: UNK
     Route: 048
     Dates: start: 20030904

REACTIONS (5)
  - ATAXIA [None]
  - CONFUSIONAL STATE [None]
  - HYPERREFLEXIA [None]
  - NERVOUS SYSTEM DISORDER [None]
  - WITHDRAWAL SYNDROME [None]
